FAERS Safety Report 9148995 (Version 1)
Quarter: 2013Q1

REPORT INFORMATION
  Report Type: Spontaneous
  Country: US (occurrence: None)
  Receive Date: 20130228
  Receipt Date: 20130228
  Transmission Date: 20140127
  Serious: Yes (Hospitalization)
  Sender: FDA-Public Use
  Company Number: None

PATIENT
  Age: 47 Year
  Sex: Male
  Weight: 96.93 kg

DRUGS (13)
  1. ERLOTINIB [Suspect]
     Indication: CHOLANGIOCARCINOMA
     Dosage: DAILY, DAYS 3-8 AND 17-22
     Dates: start: 20121109, end: 20130226
  2. METFORMIN [Concomitant]
  3. SIMVASTATIN [Concomitant]
  4. COLCRYS [Concomitant]
  5. ULORIC [Concomitant]
  6. DOCUSATE SODIUM [Concomitant]
  7. ODANSETRON HCI [Concomitant]
  8. PROMETHAZINE [Concomitant]
  9. MINOCYLCINE [Concomitant]
  10. MORPHINE ER [Concomitant]
  11. CREON UNIT CAP [Concomitant]
  12. FUROSEMIDE [Concomitant]
  13. SPIRONOLACTONE [Concomitant]

REACTIONS (2)
  - Diarrhoea [None]
  - Dehydration [None]
